FAERS Safety Report 9217885 (Version 1)
Quarter: 2013Q2

REPORT INFORMATION
  Report Type: Spontaneous
  Country: GB (occurrence: GB)
  Receive Date: 20130408
  Receipt Date: 20130408
  Transmission Date: 20140414
  Serious: Yes (Other)
  Sender: FDA-Public Use
  Company Number: GB-PFIZER INC-2013108238

PATIENT
  Age: 71 Year
  Sex: Male

DRUGS (5)
  1. DOXAZOSIN MESILATE [Suspect]
     Indication: BLOOD PRESSURE INCREASED
     Dosage: 4 MG, DAILY
     Route: 048
     Dates: start: 201208
  2. DOXAZOSIN MESILATE [Suspect]
     Dosage: 8 MG, DAILY
     Route: 048
     Dates: start: 20120803, end: 20130225
  3. RAMIPRIL [Concomitant]
     Dosage: 10 MG, DAILY
     Route: 048
  4. PAROXETINE [Concomitant]
     Dosage: 20 MG, TWICE DAILY
     Route: 048
  5. OMEPRAZOLE [Concomitant]
     Dosage: 20 MG, UNK
     Route: 048

REACTIONS (5)
  - Respiratory disorder [Recovered/Resolved]
  - Dyspnoea [Recovered/Resolved]
  - Dyspnoea [Recovered/Resolved]
  - Dyspnoea [Recovered/Resolved]
  - Blood pressure inadequately controlled [Unknown]
